FAERS Safety Report 6490860-5 (Version None)
Quarter: 2009Q4

REPORT INFORMATION
  Report Type: 
  Country: None (occurrence: None)
  Receive Date: 20091124
  Receipt Date: 20090423
  Transmission Date: 20100525
  Serious: Yes (Other)
  Sender: FDA-Public Use
  Company Number: 281818

PATIENT
  Sex: Female

DRUGS (12)
  1. HERCEPTIN [Suspect]
     Indication: BREAST CANCER STAGE II
     Dosage: INTRAVENOUS
     Route: 042
     Dates: start: 20080825, end: 20090302
  2. TAXOTERE [Concomitant]
  3. CARBOPLATIN [Concomitant]
  4. LEVOTHYROXINE SODIUM [Concomitant]
  5. TAMOXIFEN CITRATE [Concomitant]
  6. COQ-10 (UBIDECARENONE) [Concomitant]
  7. L-CARNITINE (CARNITINE) [Concomitant]
  8. VITAMIN B COMPLEX (VITAMIN B COMPLEX) [Concomitant]
  9. VITAMIN D (CHOLECALCIFEROL) [Concomitant]
  10. MELATONIN (MELATONIN) [Concomitant]
  11. MAGNESIUM CITRATE (MAGNESIUM CITRATE) [Concomitant]
  12. HAWTHORN BERRIES (CRATEGUS) [Concomitant]

REACTIONS (1)
  - EJECTION FRACTION DECREASED [None]
